FAERS Safety Report 9790598 (Version 1)
Quarter: 2013Q4

REPORT INFORMATION
  Report Type: Spontaneous
  Country: GB (occurrence: GB)
  Receive Date: 20131231
  Receipt Date: 20131231
  Transmission Date: 20140711
  Serious: Yes (Other)
  Sender: FDA-Public Use
  Company Number: GB-GLAXOSMITHKLINE-A1054834A

PATIENT
  Sex: Female

DRUGS (3)
  1. NICORETTE PATCH [Suspect]
     Indication: SMOKING CESSATION THERAPY
     Dosage: 15MG UNKNOWN
     Route: 065
  2. NICORETTE PATCH [Suspect]
     Indication: SMOKING CESSATION THERAPY
     Dosage: 25MG UNKNOWN
     Route: 065
  3. NICORETTE PATCH [Suspect]
     Indication: SMOKING CESSATION THERAPY
     Dosage: 10MG UNKNOWN
     Route: 065

REACTIONS (3)
  - Suicidal ideation [Unknown]
  - Depressed mood [Unknown]
  - Abdominal distension [Unknown]
